FAERS Safety Report 24194409 (Version 1)
Quarter: 2024Q3

REPORT INFORMATION
  Report Type: Spontaneous
  Country: US (occurrence: None)
  Receive Date: 20240808
  Receipt Date: 20240808
  Transmission Date: 20241016
  Serious: Yes (unspecified)
  Sender: Public
  Company Number: None

PATIENT
  Age: 33 Year
  Sex: Female
  Weight: 70.65 kg

DRUGS (4)
  1. SEMAGLUTIDE [Suspect]
     Active Substance: SEMAGLUTIDE
     Indication: Weight decreased
     Dosage: OTHER QUANTITY : 1 INJECTION(S)?OTHER FREQUENCY : WEEKLY?OTHER ROUTE : INTO THE STOMACH?
     Route: 050
     Dates: start: 20240616, end: 20240707
  2. OTEZLA [Concomitant]
     Active Substance: APREMILAST
  3. Ritual multivitamin [Concomitant]
  4. MAGNESIUM [Concomitant]
     Active Substance: MAGNESIUM

REACTIONS (4)
  - Breast mass [None]
  - Abscess [None]
  - Skin infection [None]
  - Mass [None]

NARRATIVE: CASE EVENT DATE: 20240715
